FAERS Safety Report 8736973 (Version 2)
Quarter: 2018Q2

REPORT INFORMATION
  Report Type: Spontaneous
  Country: US (occurrence: US)
  Receive Date: 20120822
  Receipt Date: 20180608
  Transmission Date: 20180711
  Serious: Yes (Hospitalization)
  Sender: FDA-Public Use
  Company Number: US-ASTRAZENECA-2011SE59913

PATIENT
  Age: 906 Month
  Sex: Female
  Weight: 90.7 kg

DRUGS (1)
  1. SYMBICORT [Suspect]
     Active Substance: BUDESONIDE\FORMOTEROL FUMARATE DIHYDRATE
     Indication: ASTHMA
     Dosage: 160/4.5 MICROGRAMS, 2 PUFFS, TWO TIMES A DAY
     Route: 055
     Dates: start: 201109

REACTIONS (7)
  - Muscle spasms [Unknown]
  - Pain in extremity [Unknown]
  - Intentional product misuse [Unknown]
  - Oral pain [Not Recovered/Not Resolved]
  - Dyspnoea [Unknown]
  - Gingival pain [Not Recovered/Not Resolved]
  - Asthma [Unknown]

NARRATIVE: CASE EVENT DATE: 201606
